FAERS Safety Report 10238121 (Version 2)
Quarter: 2014Q2

REPORT INFORMATION
  Report Type: Spontaneous
  Country: JP (occurrence: JP)
  Receive Date: 20140616
  Receipt Date: 20140624
  Transmission Date: 20141212
  Serious: Yes (Death)
  Sender: FDA-Public Use
  Company Number: PHHY2014JP072350

PATIENT
  Age: 92 Year
  Sex: Female

DRUGS (4)
  1. TASIGNA [Suspect]
     Indication: CHRONIC MYELOID LEUKAEMIA
     Dosage: 200 MG, DAILY
     Route: 048
     Dates: start: 201008, end: 201405
  2. ALOSENN [Concomitant]
     Route: 048
  3. TAKEPRON [Concomitant]
     Route: 048
  4. ZITHROMAC [Concomitant]
     Route: 048

REACTIONS (3)
  - Marasmus [Fatal]
  - Dementia [Unknown]
  - Hyporeflexia [Unknown]
